FAERS Safety Report 16034550 (Version 1)
Quarter: 2019Q1

REPORT INFORMATION
  Report Type: Spontaneous
  Country: US (occurrence: US)
  Receive Date: 20190205
  Receipt Date: 20190205
  Transmission Date: 20190418
  Serious: No
  Sender: FDA-Public Use
  Company Number: None

PATIENT
  Age: 38 Year
  Sex: Male

DRUGS (1)
  1. STELARA [Suspect]
     Active Substance: USTEKINUMAB
     Dates: start: 201802

REACTIONS (3)
  - Therapy cessation [None]
  - Back disorder [None]
  - Psoriatic arthropathy [None]

NARRATIVE: CASE EVENT DATE: 20190115
